FAERS Safety Report 19004992 (Version 1)
Quarter: 2021Q1

REPORT INFORMATION
  Report Type: Report from Study
  Country: US (occurrence: US)
  Receive Date: 20210312
  Receipt Date: 20210312
  Transmission Date: 20210420
  Serious: Yes (Death, Life-Threatening, Other)
  Sender: FDA-Public Use
  Company Number: NVSC2020US186685

PATIENT
  Age: 66 Year
  Sex: Female

DRUGS (3)
  1. CYCLOPHOSPHAMIDE. [Concomitant]
     Active Substance: CYCLOPHOSPHAMIDE
     Indication: CHEMOTHERAPY
     Dosage: UNK
     Route: 065
  2. FLUDARABINE [Concomitant]
     Active Substance: FLUDARABINE PHOSPHATE
     Indication: CHEMOTHERAPY
     Dosage: UNK
     Route: 065
  3. KYMRIAH [Suspect]
     Active Substance: TISAGENLECLEUCEL
     Indication: HIGH-GRADE B-CELL LYMPHOMA
     Dosage: UNK UNK, ONCE/SINGLE
     Route: 041
     Dates: start: 20190723

REACTIONS (14)
  - Cardiac failure [Unknown]
  - Organ failure [Unknown]
  - Haemoglobin decreased [Unknown]
  - Neutrophil count decreased [Unknown]
  - Pyrexia [Unknown]
  - Malignant neoplasm progression [Fatal]
  - Haematocrit decreased [Unknown]
  - Cytokine release syndrome [Recovered/Resolved]
  - Respiratory failure [Unknown]
  - Platelet count decreased [Unknown]
  - High-grade B-cell lymphoma [Fatal]
  - Hypotension [Unknown]
  - Lymphocyte count decreased [Unknown]
  - White blood cell count decreased [Unknown]
